FAERS Safety Report 5597370-8 (Version None)
Quarter: 2008Q1

REPORT INFORMATION
  Report Type: 
  Country: None (occurrence: None)
  Receive Date: 20080121
  Receipt Date: 20080109
  Transmission Date: 20080703
  Serious: Yes (Hospitalization, Other)
  Sender: FDA-Public Use
  Company Number: JP-NOVOPROD-266157

PATIENT
  Age: 65 Year
  Sex: Female
  Weight: 44 kg

DRUGS (5)
  1. NOVOLIN N [Suspect]
     Indication: INSULIN-REQUIRING TYPE 2 DIABETES MELLITUS
     Dosage: 8 U, QD
     Route: 058
     Dates: start: 20070519, end: 20070801
  2. STOGAR [Concomitant]
     Indication: GASTRIC ULCER
     Dosage: 2 TAB, QD
     Route: 048
     Dates: start: 20061205, end: 20070723
  3. GLUCOBAY [Concomitant]
     Dosage: 9 TAB, QD
     Route: 048
     Dates: start: 20060523, end: 20070801
  4. EPATAT [Concomitant]
     Dosage: 9 TAB, QD
     Route: 048
     Dates: start: 20070418, end: 20070801
  5. PROHEPARUM [Concomitant]
     Indication: GASTRIC ULCER
     Dosage: 9 TAB, QD
     Route: 048
     Dates: start: 20070723, end: 20070801

REACTIONS (1)
  - HEPATIC FUNCTION ABNORMAL [None]
